FAERS Safety Report 5733128-4 (Version None)
Quarter: 2008Q2

REPORT INFORMATION
  Report Type: 
  Country: None (occurrence: None)
  Receive Date: 20080507
  Receipt Date: 20080424
  Transmission Date: 20081010
  Serious: Yes (Hospitalization)
  Sender: FDA-Public Use
  Company Number: 280001L08JPN

PATIENT
  Age: 37 Year
  Sex: Female

DRUGS (4)
  1. UROFOLLITROPIN [Suspect]
     Indication: IN VITRO FERTILISATION
     Dosage: 1425 IU
     Route: 015
  2. MENOTROPHIN (MENOTROPHIN) [Suspect]
     Indication: IN VITRO FERTILISATION
  3. CHORIONIC GONADTROPIN [Suspect]
     Indication: IN VITRO FERTILISATION
     Dosage: 5000 IU, ONCE
  4. CETRORELIX ACETATE (CETRORELIX ACETATE) [Suspect]
     Dosage: 0.25 MG, 4 IN 1

REACTIONS (2)
  - ABDOMINAL PAIN [None]
  - CEREBRAL INFARCTION [None]
